FAERS Safety Report 17413964 (Version 1)
Quarter: 2020Q1

REPORT INFORMATION
  Report Type: Spontaneous
  Country: FR (occurrence: FR)
  Receive Date: 20200213
  Receipt Date: 20200213
  Transmission Date: 20200409
  Serious: Yes (Hospitalization, Other)
  Sender: FDA-Public Use
  Company Number: FR-ENDO PHARMACEUTICALS INC-2020-001383

PATIENT
  Age: 49 Year
  Sex: Female

DRUGS (3)
  1. PITOLISANT [Suspect]
     Active Substance: PITOLISANT
     Indication: SOMNOLENCE
     Dosage: 18 MG, DAILY
     Route: 065
     Dates: start: 201709
  2. VENLAFAXINE HYDROCHLORIDE. [Suspect]
     Active Substance: VENLAFAXINE HYDROCHLORIDE
     Indication: NARCOLEPSY
     Dosage: 150 MG, DAILY
     Route: 065
     Dates: start: 201505
  3. METHYLPHENIDATE. [Suspect]
     Active Substance: METHYLPHENIDATE
     Indication: NARCOLEPSY
     Dosage: 40 MG, DAILY
     Route: 065
     Dates: start: 201505, end: 2018

REACTIONS (3)
  - Splenic infarction [Recovered/Resolved]
  - Vasospasm [Recovered/Resolved]
  - Drug interaction [Recovered/Resolved]
